FAERS Safety Report 9276242 (Version 1)
Quarter: 2013Q2

REPORT INFORMATION
  Report Type: Report from Study
  Country: AR (occurrence: AR)
  Receive Date: 20130507
  Receipt Date: 20130507
  Transmission Date: 20140414
  Serious: Yes (Other)
  Sender: FDA-Public Use
  Company Number: PHHY2013AR044730

PATIENT
  Sex: Female

DRUGS (1)
  1. DIOVAN [Suspect]
     Indication: BLOOD PRESSURE
     Dosage: 160 MG, ONCE A DAY
     Route: 048

REACTIONS (6)
  - Lip and/or oral cavity cancer [Recovered/Resolved]
  - Pain in extremity [Not Recovered/Not Resolved]
  - Medial tibial stress syndrome [Unknown]
  - Skin burning sensation [Unknown]
  - Limb discomfort [Unknown]
  - Musculoskeletal stiffness [Unknown]
